FAERS Safety Report 24747545 (Version 1)
Quarter: 2024Q4

REPORT INFORMATION
  Report Type: Spontaneous
  Country: US (occurrence: US)
  Receive Date: 20241218
  Receipt Date: 20241218
  Transmission Date: 20250115
  Serious: No
  Sender: ROCHE
  Company Number: US-ROCHE-10000161535

PATIENT
  Age: 62 Year
  Sex: Male

DRUGS (1)
  1. ACTEMRA ACTPEN [Suspect]
     Active Substance: TOCILIZUMAB
     Indication: Psoriasis
     Route: 058

REACTIONS (2)
  - Off label use [Unknown]
  - No adverse event [Unknown]
